FAERS Safety Report 10213441 (Version 1)
Quarter: 2014Q2

REPORT INFORMATION
  Report Type: Spontaneous
  Country: FR (occurrence: None)
  Receive Date: 20140529
  Receipt Date: 20140529
  Transmission Date: 20141212
  Serious: Yes (Other)
  Sender: FDA-Public Use
  Company Number: 2014-19627

PATIENT
  Age: 84 Year
  Sex: Female

DRUGS (7)
  1. EYLEA (AFLIBERCEPT) INJECTION)AFLIBERCEPT) [Suspect]
     Indication: AGE-RELATED MACULAR DEGENERATION
     Route: 031
     Dates: start: 20131118, end: 20131118
  2. BISEPTINE (BENZALKONIUM CHLORIDE, BENZYL ALCOHOL, CHLORHEXIDINE) [Concomitant]
  3. BETADINE (POVIDONE-IODINE) [Concomitant]
  4. APROVEL (IRBESARTAN) [Concomitant]
  5. BEFIZAL (BEZAFIBRATE) [Concomitant]
  6. CERIS (TROSPIUM CHLORIDE) [Concomitant]
  7. DIALIPTIN M (METHORMIN HYDROCHLORIDE, VILDAGLIPTIN) [Concomitant]

REACTIONS (4)
  - Eye pain [None]
  - Ocular hyperaemia [None]
  - Migraine [None]
  - Inappropriate schedule of drug administration [None]
